FAERS Safety Report 7979019-X (Version None)
Quarter: 2011Q4

REPORT INFORMATION
  Report Type: 
  Country: None (occurrence: None)
  Receive Date: 20111129
  Receipt Date: 20110927
  Transmission Date: 20120403
  Serious: Yes (Hospitalization, Disabling, Other)
  Sender: FDA-Public Use
  Company Number: PHHY2011US64095

PATIENT
  Age: 70 Year
  Sex: Female

DRUGS (5)
  1. AFINITOR [Suspect]
     Indication: RENAL CELL CARCINOMA
     Dosage: 2 X 5 MG, DAILY, ORAL
     Route: 048
     Dates: start: 20101110, end: 20110624
  2. SERTRALINE HYDROCHLORIDE [Concomitant]
  3. FLEXERIL [Concomitant]
  4. SIMVASTATIN [Concomitant]
  5. ANTIBIOTICS (NO INGREDIENTS/SUBSTANCES) [Concomitant]

REACTIONS (7)
  - OEDEMA PERIPHERAL [None]
  - DYSPNOEA [None]
  - WHEEZING [None]
  - PNEUMONIA [None]
  - CREPITATIONS [None]
  - RESPIRATORY RATE INCREASED [None]
  - PNEUMONITIS [None]
